FAERS Safety Report 14853307 (Version 1)
Quarter: 2018Q2

REPORT INFORMATION
  Report Type: Spontaneous
  Country: US (occurrence: US)
  Receive Date: 20180507
  Receipt Date: 20180507
  Transmission Date: 20180711
  Serious: No
  Sender: FDA-Public Use
  Company Number: US-009507513-1804USA009977

PATIENT
  Sex: Female

DRUGS (3)
  1. PRINIVIL [Suspect]
     Active Substance: LISINOPRIL
     Route: 048
  2. LISINOPRIL. [Suspect]
     Active Substance: LISINOPRIL
     Indication: HYPERTENSION
  3. SYNTHROID [Concomitant]
     Active Substance: LEVOTHYROXINE SODIUM

REACTIONS (2)
  - Dizziness [Recovered/Resolved]
  - Palpitations [Recovered/Resolved]
